FAERS Safety Report 20651474 (Version 2)
Quarter: 2023Q2

REPORT INFORMATION
  Report Type: Spontaneous
  Country: GB (occurrence: GB)
  Receive Date: 20220330
  Receipt Date: 20230517
  Transmission Date: 20230721
  Serious: Yes (Other)
  Sender: FDA-Public Use
  Company Number: GB-MHRA-TPP4712821C7641428YC1647433980246

PATIENT
  Age: 31 Year
  Sex: Female
  Weight: 65 kg

DRUGS (10)
  1. NITROFURANTOIN [Suspect]
     Active Substance: NITROFURANTOIN
     Indication: Product used for unknown indication
     Dosage: 1 DOSAGE FORM, TWO TIMES A DAY
     Route: 065
     Dates: start: 20220309, end: 20220312
  2. NITROFURANTOIN [Suspect]
     Active Substance: NITROFURANTOIN
     Dosage: 100 MILLIGRAM (100MG MODIFIED-RELEASE CAPSULES)
     Route: 065
     Dates: start: 20220314
  3. AMITRIPTYLINE HYDROCHLORIDE [Concomitant]
     Active Substance: AMITRIPTYLINE HYDROCHLORIDE
     Indication: Product used for unknown indication
     Dosage: UNK (1 TO 2 AT NIGHT)
     Route: 065
     Dates: start: 20211223
  4. CIPROFLOXACIN [Concomitant]
     Active Substance: CIPROFLOXACIN
     Indication: Product used for unknown indication
     Dosage: 1 DOSAGE FORM, TWO TIMES A DAY (ONE DROP 2X/DAY)
     Route: 065
     Dates: start: 20220119
  5. CITALOPRAM [Concomitant]
     Active Substance: CITALOPRAM HYDROBROMIDE
     Indication: Product used for unknown indication
     Dosage: 1 DOSAGE FORM, ONCE A DAY (TAKE 1 A DAY)
     Route: 065
     Dates: start: 20210315
  6. DOXYCYCLINE [Concomitant]
     Active Substance: DOXYCYCLINE
     Indication: Product used for unknown indication
     Dosage: 2 DOSAGE FORM, ONCE A DAY (TWO NOW THEN ONE DAILY)
     Route: 065
     Dates: start: 20220119
  7. EPIPEN [Concomitant]
     Active Substance: EPINEPHRINE
     Indication: Anaphylactic reaction
     Dosage: UNK (USE IF SYMPTOMS OF ANAPHYLAXIS DEVELOP AND CALL...)
     Route: 065
     Dates: start: 20220316
  8. FEXOFENADINE [Concomitant]
     Active Substance: FEXOFENADINE HYDROCHLORIDE
     Indication: Product used for unknown indication
     Dosage: 1 DOSAGE FORM, ONCE A DAY (TAKE ONE DAILY)
     Route: 065
     Dates: start: 20220316
  9. OTOMIZE [Concomitant]
     Indication: Product used for unknown indication
     Dosage: TWO TIMES A DAY (APPLY 2X/DAY)
     Route: 065
     Dates: start: 20220119, end: 20220126
  10. PROPRANOLOL [Concomitant]
     Active Substance: PROPRANOLOL HYDROCHLORIDE
     Indication: Product used for unknown indication
     Dosage: 1 DOSAGE FORM, ONCE A DAY (TAKE ONE DAILY)
     Route: 065
     Dates: start: 20210315

REACTIONS (3)
  - Lip swelling [Recovered/Resolved]
  - Chest discomfort [Recovered/Resolved]
  - Rash [Recovered/Resolved]

NARRATIVE: CASE EVENT DATE: 20220314
